FAERS Safety Report 20855211 (Version 1)
Quarter: 2022Q2

REPORT INFORMATION
  Report Type: Spontaneous
  Country: US (occurrence: None)
  Receive Date: 20220519
  Receipt Date: 20220519
  Transmission Date: 20220721
  Serious: Yes (Hospitalization)
  Sender: FDA-Public Use
  Company Number: None

PATIENT
  Age: 64 Year
  Sex: Female

DRUGS (1)
  1. REPATHA [Suspect]
     Active Substance: EVOLOCUMAB
     Indication: Hyperlipidaemia
     Dosage: OTHER FREQUENCY : ONCE A MONTH;?
     Route: 058

REACTIONS (5)
  - COVID-19 [None]
  - Cardiac disorder [None]
  - Stress cardiomyopathy [None]
  - Ejection fraction decreased [None]
  - Atrioventricular block [None]

NARRATIVE: CASE EVENT DATE: 20220112
